FAERS Safety Report 13046377 (Version 2)
Quarter: 2017Q1

REPORT INFORMATION
  Report Type: Spontaneous
  Country: US (occurrence: US)
  Receive Date: 20161220
  Receipt Date: 20170319
  Transmission Date: 20170428
  Serious: Yes (Other)
  Sender: FDA-Public Use
  Company Number: PHEH2016US031899

PATIENT
  Sex: Female
  Weight: 72.57 kg

DRUGS (1)
  1. COSENTYX [Suspect]
     Active Substance: SECUKINUMAB
     Indication: PSORIATIC ARTHROPATHY
     Route: 058

REACTIONS (5)
  - Lip swelling [Unknown]
  - Pharyngeal oedema [Unknown]
  - Swollen tongue [Unknown]
  - Maternal exposure during pregnancy [Unknown]
  - Tongue discomfort [Unknown]
